FAERS Safety Report 16366473 (Version 1)
Quarter: 2019Q2

REPORT INFORMATION
  Report Type: Spontaneous
  Country: GB (occurrence: GB)
  Receive Date: 20190529
  Receipt Date: 20190529
  Transmission Date: 20190711
  Serious: Yes (Other)
  Sender: FDA-Public Use
  Company Number: GB-TEVA-2019-GB-1055305

PATIENT
  Age: 40 Year
  Sex: Male
  Weight: 76.2 kg

DRUGS (4)
  1. ASCORBIC ACID. [Concomitant]
     Active Substance: ASCORBIC ACID
  2. TERBINAFINE. [Suspect]
     Active Substance: TERBINAFINE
     Indication: FUNGAL INFECTION
     Route: 048
     Dates: start: 20180919, end: 20181015
  3. L-LYSINE [Concomitant]
     Active Substance: LYSINE
  4. COD-LIVER OIL [Concomitant]
     Active Substance: COD LIVER OIL

REACTIONS (4)
  - Eye swelling [Recovered/Resolved]
  - Rash macular [Recovered/Resolved]
  - Swelling face [Recovered/Resolved]
  - Peripheral swelling [Recovered/Resolved]

NARRATIVE: CASE EVENT DATE: 20181014
